FAERS Safety Report 9823940 (Version 1)
Quarter: 2014Q1

REPORT INFORMATION
  Report Type: Spontaneous
  Country: US (occurrence: US)
  Receive Date: 20140116
  Receipt Date: 20140116
  Transmission Date: 20141002
  Serious: Yes (Hospitalization)
  Sender: FDA-Public Use
  Company Number: US-GLAXOSMITHKLINE-A1056858A

PATIENT
  Age: 61 Year
  Sex: Female

DRUGS (3)
  1. ALLI [Suspect]
     Indication: WEIGHT DECREASED
     Route: 048
  2. HYDROCHLOROTHIAZIDE [Concomitant]
  3. PRAVASTATIN [Concomitant]

REACTIONS (9)
  - Staphylococcal infection [Recovered/Resolved]
  - Sepsis [Recovered/Resolved]
  - Abdominal abscess [Recovered/Resolved]
  - Soft tissue necrosis [Recovered/Resolved]
  - Erythema [Recovered/Resolved]
  - Hepatic enzyme abnormal [Recovered/Resolved]
  - Pyrexia [Recovered/Resolved]
  - Malaise [Recovered/Resolved]
  - Abdominal pain [Recovered/Resolved]
